FAERS Safety Report 19931946 (Version 1)
Quarter: 2021Q4

REPORT INFORMATION
  Report Type: Spontaneous
  Country: CN (occurrence: CN)
  Receive Date: 20211007
  Receipt Date: 20211007
  Transmission Date: 20220303
  Serious: Yes (Other)
  Sender: FDA-Public Use
  Company Number: CN-BAXTER-2021BAX025586

PATIENT
  Age: 39 Year
  Sex: Female
  Weight: 53 kg

DRUGS (4)
  1. CYCLOPHOSPHAMIDE [Suspect]
     Active Substance: CYCLOPHOSPHAMIDE
     Indication: Invasive ductal breast carcinoma
     Dosage: CYCLOPHOSPHAMIDE 800 MG ADDED TO NORMAL SALINE 50 ML
     Route: 042
     Dates: start: 20190103, end: 20190103
  2. STERILE WATER FOR INJECTION [Suspect]
     Active Substance: WATER
     Indication: Medication dilution
     Dosage: EPIRUBICIN HYDROCHLORIDE INJECTION 130 MG ADDED TO STERILE WATER FOR INJECTION 50 ML
     Route: 042
     Dates: start: 20190103, end: 20190103
  3. EPIRUBICIN [Suspect]
     Active Substance: EPIRUBICIN
     Indication: Invasive ductal breast carcinoma
     Dosage: EPIRUBICIN HYDROCHLORIDE INJECTION 130 MG ADDED TO STERILE WATER FOR INJECTION 50 ML
     Route: 042
     Dates: start: 20190103, end: 20190103
  4. SODIUM CHLORIDE [Suspect]
     Active Substance: SODIUM CHLORIDE
     Indication: Medication dilution
     Dosage: CYCLOPHOSPHAMIDE 800 MG ADDED TO NORMAL SALINE 50 ML
     Route: 042
     Dates: start: 20190103, end: 20190103

REACTIONS (2)
  - Granulocytopenia [Unknown]
  - Hepatic function abnormal [Unknown]

NARRATIVE: CASE EVENT DATE: 20190118
